FAERS Safety Report 8029123-5 (Version None)
Quarter: 2012Q1

REPORT INFORMATION
  Report Type: 
  Country: None (occurrence: None)
  Receive Date: 20120106
  Receipt Date: 20111230
  Transmission Date: 20120608
  Serious: Yes (Other)
  Sender: FDA-Public Use
  Company Number: US-ASTRAZENECA-2011SE56852

PATIENT
  Age: 75 Year
  Sex: Male

DRUGS (4)
  1. NEXIUM [Suspect]
     Route: 048
  2. CRESTOR [Suspect]
     Route: 048
  3. RHINOCORT [Suspect]
     Dosage: ONE SPRAY PER NOSTRIL DAILY
     Route: 045
  4. TOPROL-XL [Suspect]
     Route: 048

REACTIONS (5)
  - EXOSTOSIS [None]
  - INCORRECT DOSE ADMINISTERED [None]
  - DRUG INEFFECTIVE [None]
  - POOR PERIPHERAL CIRCULATION [None]
  - MALAISE [None]
